FAERS Safety Report 23904096 (Version 1)
Quarter: 2024Q2

REPORT INFORMATION
  Report Type: Spontaneous
  Country: US (occurrence: US)
  Receive Date: 20240527
  Receipt Date: 20240527
  Transmission Date: 20240716
  Serious: No
  Sender: FDA-Public Use
  Company Number: US-COSETTE-CP2024US000101

PATIENT
  Age: 52 Year
  Sex: Female
  Weight: 160 kg

DRUGS (4)
  1. VYLEESI [Suspect]
     Active Substance: BREMELANOTIDE ACETATE
     Indication: Libido decreased
     Dosage: USE ONLY ONE DOSE
     Route: 058
     Dates: start: 20240414, end: 20240414
  2. OZEMPIC [Concomitant]
     Active Substance: SEMAGLUTIDE
     Indication: Product used for unknown indication
     Route: 065
  3. HYDROXYZINE [Concomitant]
     Active Substance: HYDROXYZINE HYDROCHLORIDE
     Indication: Product used for unknown indication
     Route: 065
  4. METFORMIN [Concomitant]
     Active Substance: METFORMIN HYDROCHLORIDE
     Indication: Product used for unknown indication
     Route: 065

REACTIONS (1)
  - Drug ineffective [Unknown]

NARRATIVE: CASE EVENT DATE: 20240414
